FAERS Safety Report 4517579-1 (Version None)
Quarter: 2004Q4

REPORT INFORMATION
  Report Type: 
  Country: None (occurrence: None)
  Receive Date: 20041203
  Receipt Date: 20041123
  Transmission Date: 20050328
  Serious: Yes (Hospitalization, Other)
  Sender: FDA-Public Use
  Company Number: FR-BRISTOL-MYERS SQUIBB COMPANY-12774485

PATIENT
  Age: 34 Year
  Sex: Female
  Weight: 53 kg

DRUGS (8)
  1. REYATAZ [Suspect]
     Indication: HIV INFECTION
     Route: 048
     Dates: start: 20040401
  2. VINBLASTINE SULFATE [Interacting]
     Indication: HODGKIN'S DISEASE
     Route: 042
     Dates: start: 20040911, end: 20040911
  3. NORVIR [Interacting]
     Indication: HIV INFECTION
     Route: 048
     Dates: start: 20040401
  4. ADRIAMYCIN PFS [Concomitant]
     Indication: HODGKIN'S DISEASE
     Route: 042
     Dates: start: 20040911
  5. VIREAD [Concomitant]
     Indication: HIV INFECTION
     Dates: start: 20040401
  6. EMTRIVA [Concomitant]
     Indication: HIV INFECTION
     Dates: start: 20040401
  7. BLEOMYCIN [Concomitant]
     Indication: HODGKIN'S DISEASE
     Route: 042
     Dates: start: 20040911
  8. DETICENE [Concomitant]
     Indication: HODGKIN'S DISEASE
     Route: 042
     Dates: start: 20040911

REACTIONS (7)
  - AGRANULOCYTOSIS [None]
  - DRUG INTERACTION [None]
  - HODGKIN'S DISEASE [None]
  - HYPERBILIRUBINAEMIA [None]
  - HYPONATRAEMIA [None]
  - INTESTINAL OBSTRUCTION [None]
  - OVERDOSE [None]
